FAERS Safety Report 15072392 (Version 1)
Quarter: 2018Q2

REPORT INFORMATION
  Report Type: Report from Study
  Country: None (occurrence: DE)
  Receive Date: 20180626
  Receipt Date: 20180626
  Transmission Date: 20180711
  Serious: Yes (Hospitalization)
  Sender: FDA-Public Use
  Company Number: DE-BIOVERATIV-2018BV000390

PATIENT
  Age: 15 Year
  Sex: Male
  Weight: 79 kg

DRUGS (2)
  1. ELOCTA [Suspect]
     Active Substance: EFMOROCTOCOG ALFA
     Indication: PROPHYLAXIS
     Dosage: PROPHYLACTIC
     Route: 065
     Dates: start: 20170131
  2. ELOCTA [Suspect]
     Active Substance: EFMOROCTOCOG ALFA
     Dosage: PROPHYLACTIC
     Route: 065
     Dates: start: 20160615, end: 20170131

REACTIONS (1)
  - Hospitalisation [Recovered/Resolved]

NARRATIVE: CASE EVENT DATE: 20180212
